FAERS Safety Report 12995185 (Version 1)
Quarter: 2016Q4

REPORT INFORMATION
  Report Type: Spontaneous
  Country: CH (occurrence: CH)
  Receive Date: 20161202
  Receipt Date: 20161202
  Transmission Date: 20170207
  Serious: Yes (Death, Other)
  Sender: FDA-Public Use
  Company Number: CH-CELGENEUS-CHE-2015021912

PATIENT
  Age: 61 Year
  Sex: Male
  Weight: 77 kg

DRUGS (22)
  1. BENDAMUSTINE [Suspect]
     Active Substance: BENDAMUSTINE
     Indication: PLASMA CELL MYELOMA
     Dosage: 75MG/M2
     Route: 041
     Dates: start: 20130918, end: 20131017
  2. LYRICA [Concomitant]
     Active Substance: PREGABALIN
     Indication: NEURALGIA
     Dosage: NOT PROVIDED.
     Route: 065
     Dates: start: 20130524
  3. EFEXOR [Concomitant]
     Active Substance: VENLAFAXINE HYDROCHLORIDE
     Indication: FATIGUE
     Dosage: NOT PROVIDED.
     Route: 065
  4. REVLIMID [Suspect]
     Active Substance: LENALIDOMIDE
     Indication: PLASMA CELL MYELOMA
     Dosage: 25MG
     Route: 048
     Dates: start: 20130918, end: 20131017
  5. REVLIMID [Suspect]
     Active Substance: LENALIDOMIDE
     Dosage: 10MG
     Route: 048
     Dates: start: 20131218, end: 20140131
  6. DEXAMETHASONE. [Suspect]
     Active Substance: DEXAMETHASONE
     Dosage: NOT PROVIDED.
     Route: 065
     Dates: start: 20050829, end: 20051104
  7. BENDAMUSTINE [Suspect]
     Active Substance: BENDAMUSTINE
     Dosage: 50MG/M2
     Route: 041
     Dates: start: 20130919
  8. PANTOPRAZOLE SODIUM. [Concomitant]
     Active Substance: PANTOPRAZOLE SODIUM
     Indication: DIVERTICULITIS
     Dosage: NOT PROVIDED.
     Route: 065
  9. BELOC ZOK [Concomitant]
     Active Substance: METOPROLOL SUCCINATE
     Indication: CARDIOVASCULAR DISORDER
     Dosage: NOT PROVIDED.
     Route: 065
  10. DOMPERIDON [Concomitant]
     Active Substance: DOMPERIDONE
     Indication: NAUSEA
     Dosage: NOT PROVIDED.
     Route: 065
     Dates: start: 20131114
  11. MACROGOL [Concomitant]
     Active Substance: POLYETHYLENE GLYCOLS
     Indication: CONSTIPATION
     Dosage: NOT PROVIDED.
     Route: 065
  12. DEXAMETHASONE. [Suspect]
     Active Substance: DEXAMETHASONE
     Dosage: 20MG
     Route: 048
     Dates: start: 20140122, end: 20140129
  13. DEXAMETHASONE. [Suspect]
     Active Substance: DEXAMETHASONE
     Indication: PLASMA CELL MYELOMA
     Dosage: 40MG
     Route: 048
     Dates: start: 20130918, end: 20140108
  14. DEXAMETHASONE. [Suspect]
     Active Substance: DEXAMETHASONE
     Dosage: NOT PROVIDED.
     Route: 065
     Dates: start: 20060213
  15. SORTIS [Concomitant]
     Active Substance: ATORVASTATIN
     Indication: CARDIOVASCULAR DISORDER
     Dosage: NOT PROVIDED.
     Route: 065
  16. ASPIRIN. [Concomitant]
     Active Substance: ASPIRIN
     Indication: CARDIOVASCULAR DISORDER
     Dosage: 100
     Route: 065
  17. DOLOPHINE [Concomitant]
     Active Substance: METHADONE HYDROCHLORIDE
     Indication: NEURALGIA
     Dosage: NOT PROVIDED.
     Route: 065
     Dates: start: 20130524
  18. FLUCONAZOL [Concomitant]
     Active Substance: FLUCONAZOLE
     Indication: STOMATITIS
     Dosage: NOT PROVIDED.
     Route: 065
     Dates: start: 20140118
  19. REVLIMID [Suspect]
     Active Substance: LENALIDOMIDE
     Dosage: 15MG
     Route: 048
     Dates: start: 20131120, end: 20131210
  20. BENDAMUSTINE [Suspect]
     Active Substance: BENDAMUSTINE
     Dosage: 60MG/M2
     Route: 041
     Dates: start: 20131120, end: 20131219
  21. METOCLOPRAMIDE. [Concomitant]
     Active Substance: METOCLOPRAMIDE
     Indication: NAUSEA
     Dosage: NOT PROVIDED.
     Route: 065
     Dates: start: 20131113
  22. SODIUM PICOSULFATE [Concomitant]
     Active Substance: SODIUM PICOSULFATE
     Indication: CONSTIPATION
     Dosage: NOT PROVIDED.
     Route: 065

REACTIONS (1)
  - Myelodysplastic syndrome [Fatal]

NARRATIVE: CASE EVENT DATE: 20141104
